FAERS Safety Report 4493067-6 (Version None)
Quarter: 2004Q4

REPORT INFORMATION
  Report Type: 
  Country: None (occurrence: None)
  Receive Date: 20041101
  Receipt Date: 20041018
  Transmission Date: 20050328
  Serious: No
  Sender: FDA-Public Use
  Company Number: 2004SE03448

PATIENT
  Age: 61 Year
  Sex: Male
  Weight: 80.3 kg

DRUGS (2)
  1. NEXIUM [Suspect]
     Indication: ABDOMINAL PAIN UPPER
     Dosage: 20 MG DAILY PO
     Route: 048
     Dates: start: 20000101, end: 20040101
  2. COZAAR [Concomitant]

REACTIONS (4)
  - HAEMOGLOBIN DECREASED [None]
  - IMPETIGO [None]
  - LEUKOCYTOCLASTIC VASCULITIS [None]
  - RASH [None]
